FAERS Safety Report 8489225-6 (Version None)
Quarter: 2012Q3

REPORT INFORMATION
  Report Type: 
  Country: None (occurrence: None)
  Receive Date: 20120705
  Receipt Date: 20120703
  Transmission Date: 20120928
  Serious: No
  Sender: FDA-Public Use
  Company Number: US-B.I. PHARMACEUTICALS,INC./RIDGEFIELD-2012-BP-14934BP

PATIENT
  Sex: Female

DRUGS (3)
  1. ACETAMINOPHEN [Concomitant]
  2. PRADAXA [Suspect]
     Indication: EMBOLISM
     Dosage: 150 MG
     Route: 048
     Dates: start: 20120703
  3. REMERON [Concomitant]
     Indication: ANXIETY

REACTIONS (3)
  - PHLEBITIS [None]
  - FATIGUE [None]
  - DIZZINESS [None]
